FAERS Safety Report 4870620-9 (Version None)
Quarter: 2005Q4

REPORT INFORMATION
  Report Type: 
  Country: None (occurrence: None)
  Receive Date: 20051223
  Receipt Date: 20051216
  Transmission Date: 20060501
  Serious: No
  Sender: FDA-Public Use
  Company Number: 1913

PATIENT
  Sex: Female

DRUGS (2)
  1. AMNESTEEM [Suspect]
     Dates: start: 20040401, end: 20040901
  2. ACCUTANE [Suspect]

REACTIONS (1)
  - CERVICAL DYSPLASIA [None]
